FAERS Safety Report 9565939 (Version 1)
Quarter: 2013Q3

REPORT INFORMATION
  Report Type: Spontaneous
  Country: PL (occurrence: PL)
  Receive Date: 20130930
  Receipt Date: 20130930
  Transmission Date: 20140515
  Serious: Yes (Other)
  Sender: FDA-Public Use
  Company Number: PL-MYLANLABS-2013S1021161

PATIENT
  Age: 62 Year
  Sex: Female

DRUGS (4)
  1. DONEPEZIL [Suspect]
     Indication: DEMENTIA ALZHEIMER^S TYPE
     Dosage: 5MG DAILY; INCREASED TO 10MG ONCE DAILY AFTER 6W
     Route: 065
     Dates: start: 2007, end: 200808
  2. DONEPEZIL [Suspect]
     Indication: DEMENTIA ALZHEIMER^S TYPE
     Route: 065
     Dates: start: 2007, end: 200808
  3. PARACETAMOL [Concomitant]
     Route: 065
  4. ASPIRIN [Concomitant]
     Route: 065

REACTIONS (4)
  - Delirium [Recovering/Resolving]
  - Withdrawal syndrome [Unknown]
  - Abdominal pain upper [Unknown]
  - Decreased appetite [Recovered/Resolved]
